FAERS Safety Report 17730122 (Version 4)
Quarter: 2020Q4

REPORT INFORMATION
  Report Type: Report from Study
  Country: US (occurrence: US)
  Receive Date: 20200430
  Receipt Date: 20201104
  Transmission Date: 20210113
  Serious: Yes (Hospitalization, Other)
  Sender: FDA-Public Use
  Company Number: US-ASTELLAS-2020US014681

PATIENT
  Age: 65 Year
  Sex: Male

DRUGS (2)
  1. ENZALUTAMIDE [Suspect]
     Active Substance: ENZALUTAMIDE
     Indication: PROSTATE CANCER
     Route: 048
  2. ENZALUTAMIDE [Suspect]
     Active Substance: ENZALUTAMIDE
     Route: 048
     Dates: start: 20200401, end: 202010

REACTIONS (11)
  - Eating disorder [Not Recovered/Not Resolved]
  - Nausea [Unknown]
  - Urine odour abnormal [Unknown]
  - Blood urine present [Recovered/Resolved]
  - Malaise [Unknown]
  - Diarrhoea [Unknown]
  - Haemorrhage [Unknown]
  - Anuria [Recovered/Resolved]
  - Anaemia [Unknown]
  - Pollakiuria [Unknown]
  - Oral pain [Not Recovered/Not Resolved]

NARRATIVE: CASE EVENT DATE: 20200311
